FAERS Safety Report 9310831 (Version 1)
Quarter: 2013Q2

REPORT INFORMATION
  Report Type: Spontaneous
  Country: ES (occurrence: ES)
  Receive Date: 20130528
  Receipt Date: 20130528
  Transmission Date: 20140414
  Serious: Yes (Other)
  Sender: FDA-Public Use
  Company Number: ES-009507513-1305ESP013932

PATIENT
  Age: 40 Year
  Sex: Male
  Weight: 58 kg

DRUGS (3)
  1. REBETOL [Suspect]
     Indication: CHRONIC HEPATITIS C
     Dosage: 1 G, QD
     Route: 048
     Dates: start: 20130125, end: 20130417
  2. PEGASYS [Suspect]
     Indication: CHRONIC HEPATITIS C
     Dosage: 180 MICROGRAM, QW
     Route: 058
     Dates: start: 20130125, end: 20130412
  3. TELAPREVIR [Suspect]
     Indication: CHRONIC HEPATITIS C
     Dosage: 2.25 G, QD
     Route: 048
     Dates: start: 20130222, end: 20130417

REACTIONS (2)
  - Toxic skin eruption [Recovered/Resolved]
  - Eosinophilia [Recovered/Resolved]
